FAERS Safety Report 19514557 (Version 1)
Quarter: 2021Q3

REPORT INFORMATION
  Report Type: Report from Study
  Country: None (occurrence: DK)
  Receive Date: 20210709
  Receipt Date: 20210709
  Transmission Date: 20211014
  Serious: Yes (Hospitalization)
  Sender: FDA-Public Use
  Company Number: DK-ABBVIE-21P-044-3979605-00

PATIENT
  Age: 77 Year
  Sex: Male

DRUGS (11)
  1. RITUXIMAB. [Concomitant]
     Active Substance: RITUXIMAB
     Indication: MANTLE CELL LYMPHOMA
     Dosage: DOSE PRIOR TO AE 11 MAY 2021
     Dates: start: 20210420
  2. SULFAMETHOXAZOLE/TRIMETHOPRIM [Concomitant]
     Active Substance: SULFAMETHOXAZOLE\TRIMETHOPRIM
     Indication: ANTIFUNGAL PROPHYLAXIS
     Dates: start: 20210420
  3. MEROPENEM. [Concomitant]
     Active Substance: MEROPENEM
     Indication: PRODUCT USED FOR UNKNOWN INDICATION
     Route: 042
     Dates: start: 20210617, end: 20210621
  4. VENETOCLAX. [Suspect]
     Active Substance: VENETOCLAX
     Indication: MANTLE CELL LYMPHOMA
     Dosage: DOSE PRIOR TO AE: 30 JUN 2021
     Route: 048
     Dates: start: 20210420
  5. ACETYLSALICYLIC ACID [Concomitant]
     Active Substance: ASPIRIN
     Indication: THROMBOSIS PROPHYLAXIS
     Dates: start: 20210420
  6. PIPERACILLIN/TAZOBACTAM [Concomitant]
     Active Substance: PIPERACILLIN SODIUM\TAZOBACTAM SODIUM
     Indication: PRODUCT USED FOR UNKNOWN INDICATION
     Route: 042
     Dates: start: 20210614, end: 20210617
  7. LENALIDOMIDE [Concomitant]
     Active Substance: LENALIDOMIDE
     Indication: MANTLE CELL LYMPHOMA
     Dosage: DOSE PRIOR TO AE: 07 JUN 2021
     Dates: start: 20210420
  8. ACICLOVIR [Concomitant]
     Active Substance: ACYCLOVIR
     Indication: ANTIVIRAL PROPHYLAXIS
     Dates: start: 20210420
  9. FILGRASTIM(ACCOFIL) [Concomitant]
     Indication: PROPHYLAXIS
     Dates: start: 20210614
  10. PROBENECID. [Concomitant]
     Active Substance: PROBENECID
     Indication: PROPHYLAXIS
     Dates: start: 20210427
  11. MOXIFLOXACIN. [Concomitant]
     Active Substance: MOXIFLOXACIN
     Indication: PRODUCT USED FOR UNKNOWN INDICATION
     Route: 048
     Dates: start: 20210623, end: 20210624

REACTIONS (1)
  - Arthritis infective [Recovered/Resolved with Sequelae]

NARRATIVE: CASE EVENT DATE: 20210630
